FAERS Safety Report 10432654 (Version 1)
Quarter: 2014Q3

REPORT INFORMATION
  Report Type: Report from Study
  Country: BR (occurrence: BR)
  Receive Date: 20140905
  Receipt Date: 20140905
  Transmission Date: 20150326
  Serious: Yes (Death, Hospitalization, Other)
  Sender: FDA-Public Use
  Company Number: BR-BAYER-2014-130014

PATIENT
  Age: 77 Year
  Sex: Male
  Weight: 70 kg

DRUGS (2)
  1. NEXAVAR [Suspect]
     Active Substance: SORAFENIB
     Indication: HEPATIC CANCER
     Dosage: 2 DF, BID
     Route: 048
     Dates: start: 2014, end: 2014
  2. ADRENALINE [Concomitant]
     Active Substance: EPINEPHRINE
     Dosage: UNK
     Dates: start: 201407, end: 201407

REACTIONS (9)
  - Hepatic cancer [Fatal]
  - Pleural effusion [Recovered/Resolved]
  - Multi-organ failure [None]
  - Dyspnoea [Not Recovered/Not Resolved]
  - Dysentery [Not Recovered/Not Resolved]
  - Blood glucose decreased [Not Recovered/Not Resolved]
  - Rash vesicular [Not Recovered/Not Resolved]
  - Headache [Unknown]
  - Decreased appetite [Not Recovered/Not Resolved]

NARRATIVE: CASE EVENT DATE: 2014
